FAERS Safety Report 7625507-5 (Version None)
Quarter: 2011Q3

REPORT INFORMATION
  Report Type: 
  Country: None (occurrence: None)
  Receive Date: 20110721
  Receipt Date: 20110223
  Transmission Date: 20111222
  Serious: Yes (Life-Threatening, Hospitalization)
  Sender: FDA-Public Use
  Company Number: US-KINGPHARMUSA00001-K201100204

PATIENT
  Sex: Male

DRUGS (1)
  1. SEPTRA [Suspect]
     Indication: BRONCHITIS
     Dosage: UNK
     Route: 048
     Dates: start: 20100901, end: 20101001

REACTIONS (10)
  - SKIN EXFOLIATION [None]
  - GENITAL RASH [None]
  - BRONCHITIS [None]
  - COUGH [None]
  - GAIT DISTURBANCE [None]
  - SCAR [None]
  - SWOLLEN TONGUE [None]
  - PAIN [None]
  - DYSURIA [None]
  - STEVENS-JOHNSON SYNDROME [None]
